FAERS Safety Report 21119309 (Version 1)
Quarter: 2022Q3

REPORT INFORMATION
  Report Type: Spontaneous
  Country: US (occurrence: US)
  Receive Date: 20220722
  Receipt Date: 20220722
  Transmission Date: 20221026
  Serious: Yes (Hospitalization, Other)
  Sender: FDA-Public Use
  Company Number: US-PFIZER INC-202200952842

PATIENT
  Age: 60 Year
  Sex: Male

DRUGS (15)
  1. LEVETIRACETAM [Suspect]
     Active Substance: LEVETIRACETAM
     Indication: Epilepsy
     Dosage: 3000 MG, DAILY
  2. LACOSAMIDE [Suspect]
     Active Substance: LACOSAMIDE
     Indication: Epilepsy
     Dosage: 600 MG, DAILY
  3. LACOSAMIDE [Suspect]
     Active Substance: LACOSAMIDE
     Dosage: 200 MG, 2X/DAY
  4. VALPROIC ACID [Concomitant]
     Active Substance: VALPROIC ACID
     Indication: Epilepsy
     Dosage: 2000 MG, DAILY
  5. LAMOTRIGINE [Concomitant]
     Active Substance: LAMOTRIGINE
     Indication: Epilepsy
     Dosage: 300 MG, DAILY
  6. CLONAZEPAM [Concomitant]
     Active Substance: CLONAZEPAM
     Indication: Epilepsy
     Dosage: 1 MG, 1X/DAY (PER NIGHT)
  7. TIAGABINE [Concomitant]
     Active Substance: TIAGABINE
     Indication: Epilepsy
     Dosage: 12 MG, 4X/DAY
  8. TIAGABINE [Concomitant]
     Active Substance: TIAGABINE
     Dosage: 42 MG, DAILY
  9. PERAMPANEL [Concomitant]
     Active Substance: PERAMPANEL
     Indication: Epilepsy
     Dosage: 16 MG, 1X/DAY (PER NIGHT)
  10. PERAMPANEL [Concomitant]
     Active Substance: PERAMPANEL
     Dosage: 12 MG, 1X/DAY (PER NIGHT)
  11. PERAMPANEL [Concomitant]
     Active Substance: PERAMPANEL
     Dosage: 8 MG, DAILY
  12. CANNABIDIOL [Concomitant]
     Active Substance: CANNABIDIOL
     Indication: Epilepsy
     Dosage: 150 MG, DAILY
  13. CANNABIDIOL [Concomitant]
     Active Substance: CANNABIDIOL
     Dosage: 20 MG/KG, DAILY
  14. EPIDIOLEX [Concomitant]
     Active Substance: CANNABIDIOL
     Indication: Epilepsy
     Dosage: 20 MG/KG, 1X/DAY
  15. BRIVARACETAM [Concomitant]
     Active Substance: BRIVARACETAM
     Indication: Epilepsy
     Dosage: 200 MG, DAILY

REACTIONS (1)
  - Drug level increased [Unknown]
